FAERS Safety Report 4696205-5 (Version None)
Quarter: 2005Q2

REPORT INFORMATION
  Report Type: 
  Country: None (occurrence: None)
  Receive Date: 20050621
  Receipt Date: 20050606
  Transmission Date: 20051028
  Serious: Yes (Other)
  Sender: FDA-Public Use
  Company Number: 2005AC00885

PATIENT
  Age: 56 Year
  Sex: Female

DRUGS (3)
  1. MEPIVACAINE HCL [Suspect]
     Indication: HEADACHE
     Route: 053
  2. PREDONINE [Concomitant]
  3. CARBAMAZEPINE [Concomitant]

REACTIONS (3)
  - DIZZINESS [None]
  - DYSPHONIA [None]
  - HYPERTENSION [None]
